FAERS Safety Report 15154368 (Version 1)
Quarter: 2018Q3

REPORT INFORMATION
  Report Type: Spontaneous
  Country: US (occurrence: US)
  Receive Date: 20180717
  Receipt Date: 20180717
  Transmission Date: 20181010
  Serious: Yes (Other)
  Sender: FDA-Public Use
  Company Number: US-JNJFOC-20180714446

PATIENT
  Age: 11 Month
  Sex: Female

DRUGS (1)
  1. TOPAMAX [Suspect]
     Active Substance: TOPIRAMATE
     Indication: FOCAL DYSCOGNITIVE SEIZURES
     Dosage: MAXIMUM DOSE 2.2 TO 21.4 MG/KG
     Route: 048

REACTIONS (3)
  - Product use issue [Unknown]
  - Nephrocalcinosis [Recovered/Resolved]
  - Off label use [Unknown]
